FAERS Safety Report 15862153 (Version 2)
Quarter: 2019Q1

REPORT INFORMATION
  Report Type: Spontaneous
  Country: RO (occurrence: RO)
  Receive Date: 20190124
  Receipt Date: 20190201
  Transmission Date: 20190417
  Serious: Yes (Death, Hospitalization, Other)
  Sender: FDA-Public Use
  Company Number: PHHY2019RO015720

PATIENT
  Age: 67 Year
  Sex: Male
  Weight: 80 kg

DRUGS (4)
  1. CORDARONE [Concomitant]
     Active Substance: AMIODARONE HYDROCHLORIDE
     Indication: HYPERTENSION
     Dosage: 200 MG, QD
     Route: 048
  2. ATACAND [Concomitant]
     Active Substance: CANDESARTAN CILEXETIL
     Indication: PRODUCT USED FOR UNKNOWN INDICATION
     Dosage: 1 DF, QD
     Route: 065
  3. ASPACARDIN [Concomitant]
     Indication: PRODUCT USED FOR UNKNOWN INDICATION
     Dosage: 30/15 MG, TID
     Route: 048
  4. VOTRIENT [Suspect]
     Active Substance: PAZOPANIB HYDROCHLORIDE
     Indication: METASTATIC RENAL CELL CARCINOMA
     Dosage: 800 MG, QD
     Route: 048
     Dates: start: 20180910, end: 20190101

REACTIONS (45)
  - Aortic valve incompetence [Unknown]
  - Atrial fibrillation [Unknown]
  - Ischaemic stroke [Unknown]
  - Hypokalaemia [Unknown]
  - Hepatitis chronic active [Unknown]
  - Cerebral atrophy [Unknown]
  - Generalised oedema [Unknown]
  - Hydronephrosis [Unknown]
  - Hypochromic anaemia [Unknown]
  - Tricuspid valve incompetence [Unknown]
  - Embolic stroke [Unknown]
  - Gastric dysplasia [Unknown]
  - Hyperproteinaemia [Unknown]
  - Renal neoplasm [Unknown]
  - Cardiac arrest [Fatal]
  - Gastric ulcer [Unknown]
  - Kidney infection [Unknown]
  - Pneumonitis [Unknown]
  - Pulmonary embolism [Fatal]
  - Upper gastrointestinal haemorrhage [Unknown]
  - Renal cancer [Unknown]
  - Confusional state [Unknown]
  - Fatigue [Unknown]
  - Pleural effusion [Unknown]
  - Skin discolouration [Unknown]
  - Anaemia [Unknown]
  - Renal cancer stage IV [Fatal]
  - Pneumonia [Unknown]
  - Helicobacter infection [Unknown]
  - Bronchitis [Unknown]
  - Regurgitation [Unknown]
  - Gastric disorder [Unknown]
  - Splenomegaly [Unknown]
  - Asthenia [Unknown]
  - Melaena [Unknown]
  - Acute kidney injury [Unknown]
  - Abdominal pain lower [Unknown]
  - Lymphadenopathy mediastinal [Unknown]
  - Pain [Unknown]
  - Depressed level of consciousness [Unknown]
  - Dyspnoea [Unknown]
  - Dyspnoea at rest [Unknown]
  - Chest pain [Unknown]
  - Pallor [Unknown]
  - Tachycardia [Unknown]

NARRATIVE: CASE EVENT DATE: 20190101
